FAERS Safety Report 4464940-X (Version None)
Quarter: 2004Q4

REPORT INFORMATION
  Report Type: 
  Country: None (occurrence: None)
  Receive Date: 20041004
  Receipt Date: 20040321
  Transmission Date: 20050328
  Serious: No
  Sender: FDA-Public Use
  Company Number: 364912

PATIENT

DRUGS (3)
  1. COREG [Suspect]
     Indication: DRUG USE FOR UNKNOWN INDICATION
     Route: 048
  2. AVANDAMET [Suspect]
     Indication: DRUG USE FOR UNKNOWN INDICATION
     Route: 048
  3. NSAID [Concomitant]

REACTIONS (1)
  - OEDEMA [None]
